FAERS Safety Report 7791810-1 (Version None)
Quarter: 2011Q4

REPORT INFORMATION
  Report Type: 
  Country: None (occurrence: None)
  Receive Date: 20111003
  Receipt Date: 20110926
  Transmission Date: 20120403
  Serious: No
  Sender: FDA-Public Use
  Company Number: US-PFIZER INC-2011229440

PATIENT
  Sex: Male

DRUGS (1)
  1. LOMOTIL [Suspect]
     Dosage: UNK

REACTIONS (2)
  - DIARRHOEA [None]
  - NAUSEA [None]
